FAERS Safety Report 5469296-1 (Version None)
Quarter: 2007Q3

REPORT INFORMATION
  Report Type: 
  Country: None (occurrence: None)
  Receive Date: 20070927
  Receipt Date: 20070920
  Transmission Date: 20080115
  Serious: Yes (Death, Other)
  Sender: FDA-Public Use
  Company Number: IL-NOVOPROD-267702

PATIENT

DRUGS (3)
  1. NOVOSEVEN [Suspect]
     Indication: HAEMORRHAGE
     Dosage: 4.8 MG, UNK
     Route: 042
     Dates: start: 20070907
  2. NOVOSEVEN [Suspect]
  3. NOVOSEVEN [Suspect]

REACTIONS (2)
  - HAEMORRHAGE [None]
  - MULTI-ORGAN FAILURE [None]
